FAERS Safety Report 12113322 (Version 3)
Quarter: 2018Q4

REPORT INFORMATION
  Report Type: Spontaneous
  Country: US (occurrence: US)
  Receive Date: 20160225
  Receipt Date: 20181221
  Transmission Date: 20190204
  Serious: Yes (Other)
  Sender: FDA-Public Use
  Company Number: US-TEVA-637887ACC

PATIENT
  Sex: Female

DRUGS (1)
  1. PARAGARD T 380A [Suspect]
     Active Substance: COPPER
     Indication: CONTRACEPTION
     Dates: start: 20150626

REACTIONS (3)
  - Maternal exposure during pregnancy [Unknown]
  - Device dislocation [Not Recovered/Not Resolved]
  - Pregnancy on contraceptive [Unknown]
